FAERS Safety Report 7313628-6 (Version None)
Quarter: 2011Q1

REPORT INFORMATION
  Report Type: 
  Country: None (occurrence: None)
  Receive Date: 20110224
  Receipt Date: 20110224
  Transmission Date: 20110831
  Serious: Yes (Other)
  Sender: FDA-Public Use
  Company Number: None

PATIENT
  Age: 63 Year
  Sex: Female
  Weight: 106.1417 kg

DRUGS (1)
  1. RITE AID ALCOHOL SWABS 70 % ISOPROPYL ALCOHOL TRIAD GROUP INC./BROOKFI [Suspect]
     Indication: THERAPEUTIC SKIN CARE TOPICAL
     Dates: start: 20110217, end: 20110221

REACTIONS (1)
  - SKIN INFECTION [None]
